FAERS Safety Report 16112309 (Version 1)
Quarter: 2019Q2

REPORT INFORMATION
  Report Type: Spontaneous
  Country: US (occurrence: US)
  Receive Date: 20190324
  Receipt Date: 20190324
  Transmission Date: 20190711
  Serious: Yes (Other)
  Sender: FDA-Public Use
  Company Number: None

PATIENT
  Age: 38 Year
  Sex: Female
  Weight: 52.2 kg

DRUGS (5)
  1. PREDNISONE. [Concomitant]
     Active Substance: PREDNISONE
  2. TOPIRAMATE. [Concomitant]
     Active Substance: TOPIRAMATE
  3. PROBIOTICS [Concomitant]
     Active Substance: PROBIOTICS NOS
  4. CIPROFLOXACIN 500MG TABLETS [Suspect]
     Active Substance: CIPROFLOXACIN
     Indication: CYSTITIS
     Dosage: ?          QUANTITY:6 TABLET(S);?
     Route: 048
     Dates: start: 20190309, end: 20190311
  5. LEVOTHYROXINE. [Concomitant]
     Active Substance: LEVOTHYROXINE

REACTIONS (2)
  - Abdominal pain [None]
  - Liver function test increased [None]

NARRATIVE: CASE EVENT DATE: 20190311
